FAERS Safety Report 10233684 (Version 1)
Quarter: 2014Q2

REPORT INFORMATION
  Report Type: Spontaneous
  Country: JP (occurrence: None)
  Receive Date: 20140610
  Receipt Date: 20140610
  Transmission Date: 20141212
  Serious: Yes (Other)
  Sender: FDA-Public Use
  Company Number: FK201402201

PATIENT
  Age: 56 Year
  Sex: Male

DRUGS (1)
  1. CISPLATIN [Suspect]
     Indication: BASOSQUAMOUS CARCINOMA

REACTIONS (5)
  - Mucosal inflammation [None]
  - Dermatitis [None]
  - Keratitis [None]
  - Haematotoxicity [None]
  - Visual impairment [None]
